FAERS Safety Report 7357201-2 (Version None)
Quarter: 2011Q1

REPORT INFORMATION
  Report Type: 
  Country: None (occurrence: None)
  Receive Date: 20110317
  Receipt Date: 20110314
  Transmission Date: 20110831
  Serious: No
  Sender: FDA-Public Use
  Company Number: US-PFIZER INC-2011025299

PATIENT
  Sex: Female

DRUGS (2)
  1. PRISTIQ [Suspect]
     Indication: DEPRESSION
     Dosage: 50 MG, UNK
     Route: 048
     Dates: start: 20110202, end: 20110204
  2. TOPAMAX [Concomitant]
     Indication: HEADACHE
     Dosage: 50 MG, 2X/DAY
     Dates: start: 20100101

REACTIONS (1)
  - HYPOAESTHESIA ORAL [None]
